FAERS Safety Report 13331146 (Version 1)
Quarter: 2017Q1

REPORT INFORMATION
  Report Type: Spontaneous
  Country: US (occurrence: US)
  Receive Date: 20170313
  Receipt Date: 20170313
  Transmission Date: 20170428
  Serious: Yes (Disabling)
  Sender: FDA-Public Use
  Company Number: None

PATIENT
  Age: 66 Year
  Sex: Female
  Weight: 64.8 kg

DRUGS (15)
  1. NITROSTAT [Concomitant]
     Active Substance: NITROGLYCERIN
  2. ORPHENADRINE [Concomitant]
     Active Substance: ORPHENADRINE
  3. FOLIC ACID. [Concomitant]
     Active Substance: FOLIC ACID
  4. LOSARTAN. [Concomitant]
     Active Substance: LOSARTAN
  5. CALCIUM [Concomitant]
     Active Substance: CALCIUM
  6. PILOCARPINE. [Suspect]
     Active Substance: PILOCARPINE
     Indication: DRY MOUTH
     Dosage: ?          QUANTITY:1 TABLET(S);?
     Route: 048
     Dates: start: 20170224, end: 20170306
  7. XIIDRA [Suspect]
     Active Substance: LIFITEGRAST
     Indication: DRY EYE
     Dosage: ?          QUANTITY:1 DROP(S);?
     Route: 047
     Dates: start: 20170302, end: 20170308
  8. ASPIRIN. [Concomitant]
     Active Substance: ASPIRIN
  9. NAPROXEN SODIUM. [Concomitant]
     Active Substance: NAPROXEN SODIUM
  10. OXYBUTYNIN [Concomitant]
     Active Substance: OXYBUTYNIN
  11. CITALOPRAM [Concomitant]
     Active Substance: CITALOPRAM HYDROBROMIDE
  12. VITAMIN E [Concomitant]
     Active Substance: .ALPHA.-TOCOPHEROL
  13. VITAMIN B12 [Concomitant]
     Active Substance: CYANOCOBALAMIN
  14. VITAMIN D3 [Concomitant]
     Active Substance: CHOLECALCIFEROL
  15. OMEPRAZOLE. [Concomitant]
     Active Substance: OMEPRAZOLE

REACTIONS (1)
  - Rash generalised [None]

NARRATIVE: CASE EVENT DATE: 20170302
